FAERS Safety Report 6849168-8 (Version None)
Quarter: 2010Q3

REPORT INFORMATION
  Report Type: 
  Country: None (occurrence: None)
  Receive Date: 20100716
  Receipt Date: 20100709
  Transmission Date: 20110219
  Serious: Yes (Hospitalization, Other)
  Sender: FDA-Public Use
  Company Number: PHHO2010DE05293

PATIENT
  Sex: Female

DRUGS (13)
  1. NEORAL [Suspect]
     Indication: LIVER TRANSPLANT
     Dosage: UNK
     Dates: start: 20070412, end: 20080305
  2. NO TREATMENT RECEIVED NOMED [Suspect]
     Indication: LIVER TRANSPLANT
     Dosage: NO TREATMENT
  3. TACROLIMUS [Suspect]
     Indication: LIVER TRANSPLANT
     Dosage: UNK
     Dates: start: 20070726
  4. CALCIMAGON [Concomitant]
  5. UDC [Concomitant]
  6. DELIX [Concomitant]
  7. METOPROLOL TARTRATE [Concomitant]
  8. ALDACTONE [Concomitant]
  9. PANTOZOL [Concomitant]
  10. LOCOL [Concomitant]
  11. CIPRAMIL [Concomitant]
  12. DECORTIN [Concomitant]
  13. ZOP [Concomitant]

REACTIONS (10)
  - BILE DUCT STENT REMOVAL [None]
  - BILE DUCT STONE [None]
  - BLOOD BILIRUBIN INCREASED [None]
  - ENDOSCOPIC RETROGRADE CHOLANGIOPANCREATOGRAPHY [None]
  - HEPATIC STEATOSIS [None]
  - PLEURAL EFFUSION [None]
  - PLEURODESIS [None]
  - PNEUMONIA PRIMARY ATYPICAL [None]
  - PROTEINURIA [None]
  - TRANSAMINASES INCREASED [None]
